FAERS Safety Report 25463694 (Version 1)
Quarter: 2025Q2

REPORT INFORMATION
  Report Type: Spontaneous
  Country: RO (occurrence: RO)
  Receive Date: 20250621
  Receipt Date: 20250621
  Transmission Date: 20250717
  Serious: Yes (Death, Other)
  Sender: CELLTRION
  Company Number: RO-ROCHE-10000183413

PATIENT

DRUGS (10)
  1. BEVACIZUMAB [Suspect]
     Active Substance: BEVACIZUMAB
     Indication: Lung adenocarcinoma
     Route: 065
     Dates: start: 201701, end: 202405
  2. BEVACIZUMAB [Suspect]
     Active Substance: BEVACIZUMAB
     Route: 065
  3. ATEZOLIZUMAB [Suspect]
     Active Substance: ATEZOLIZUMAB
     Indication: Lung adenocarcinoma
     Route: 065
     Dates: start: 201701, end: 202405
  4. ATEZOLIZUMAB [Suspect]
     Active Substance: ATEZOLIZUMAB
  5. ERLOTINIB [Concomitant]
     Active Substance: ERLOTINIB
     Indication: Lung adenocarcinoma
     Dates: start: 201701, end: 202405
  6. OSIMERTINIB [Concomitant]
     Active Substance: OSIMERTINIB
     Indication: Lung adenocarcinoma
     Dates: start: 201701, end: 202405
  7. CARBOPLATIN [Concomitant]
     Active Substance: CARBOPLATIN
     Indication: Lung adenocarcinoma
     Dates: start: 201701, end: 202405
  8. PACLITAXEL [Concomitant]
     Active Substance: PACLITAXEL
     Indication: Lung adenocarcinoma
     Dates: start: 201701, end: 202405
  9. ZOLEDRONIC ACID [Concomitant]
     Active Substance: ZOLEDRONIC ACID
     Indication: Adjuvant therapy
  10. DENOSUMAB [Concomitant]
     Active Substance: DENOSUMAB
     Indication: Adjuvant therapy

REACTIONS (5)
  - Disease progression [Fatal]
  - Metastases to meninges [Fatal]
  - Erythema [Unknown]
  - Loss of therapeutic response [Unknown]
  - Product use issue [Unknown]
